FAERS Safety Report 8882261 (Version 2)
Quarter: 2012Q4

REPORT INFORMATION
  Report Type: 
  Country: ES (occurrence: ES)
  Receive Date: 20121102
  Receipt Date: 20121121
  Transmission Date: 20130627
  Serious: Yes (Other)
  Sender: FDA-Public Use
  Company Number: ES-CELGENEUS-144-21880-12103225

PATIENT
  Age: 79 Year
  Sex: Male

DRUGS (6)
  1. REVLIMID [Suspect]
     Indication: MULTIPLE MYELOMA
     Dosage: 25 Milligram
     Route: 048
     Dates: start: 200907, end: 201209
  2. ADIRO [Concomitant]
     Indication: THROMBOSIS PROPHYLAXIS
     Route: 048
  3. TIOTROPIUM BROMIDE [Concomitant]
     Indication: ASTHMA BRONCHIAL
     Route: 065
  4. SERETIDE [Concomitant]
     Indication: ASTHMA BRONCHIAL
     Route: 065
  5. OMEPRAZOLE [Concomitant]
     Indication: PROPHYLAXIS
     Dosage: 20 Milligram
     Route: 048
  6. GLUMIDOL [Concomitant]
     Indication: DRUG THERAPY
     Route: 048

REACTIONS (1)
  - Central nervous system neoplasm [Not Recovered/Not Resolved]
